FAERS Safety Report 19721967 (Version 1)
Quarter: 2021Q3

REPORT INFORMATION
  Report Type: Spontaneous
  Country: CA (occurrence: CA)
  Receive Date: 20210818
  Receipt Date: 20210818
  Transmission Date: 20211014
  Serious: Yes (Other)
  Sender: FDA-Public Use
  Company Number: CA-JNJFOC-20210826864

PATIENT
  Age: 50 Year
  Sex: Female

DRUGS (6)
  1. MACROGOL 3350 [Concomitant]
     Active Substance: POLYETHYLENE GLYCOL 3350
     Route: 065
  2. MACROGOL 3350 [Concomitant]
     Active Substance: POLYETHYLENE GLYCOL 3350
  3. INFLIXIMAB, RECOMBINANT [Suspect]
     Active Substance: INFLIXIMAB
     Indication: CROHN^S DISEASE
     Route: 042
  4. AZATHIOPRINE. [Concomitant]
     Active Substance: AZATHIOPRINE
  5. MESALAZINE [Concomitant]
     Active Substance: MESALAMINE
  6. CITALOPRAM [Concomitant]
     Active Substance: CITALOPRAM HYDROBROMIDE
     Indication: DEPRESSION
     Route: 065

REACTIONS (12)
  - Uveitis [Unknown]
  - Eye ulcer [Unknown]
  - Skin ulcer [Unknown]
  - Weight decreased [Unknown]
  - Condition aggravated [Unknown]
  - Body temperature decreased [Unknown]
  - Arthralgia [Unknown]
  - Heart rate decreased [Unknown]
  - Blood pressure systolic increased [Unknown]
  - Mouth ulceration [Unknown]
  - Food allergy [Unknown]
  - Pustule [Unknown]
